FAERS Safety Report 4280638-5 (Version None)
Quarter: 2004Q1

REPORT INFORMATION
  Report Type: 
  Country: None (occurrence: None)
  Receive Date: 20040127
  Receipt Date: 20040114
  Transmission Date: 20041129
  Serious: Yes (Death, Hospitalization, Other)
  Sender: FDA-Public Use
  Company Number: US-SHR-04-020036

PATIENT
  Sex: Male

DRUGS (1)
  1. QUINAGLUTE [Suspect]
     Indication: VENTRICULAR ARRHYTHMIA
     Dosage: ORAL
     Route: 048
     Dates: start: 19810401

REACTIONS (10)
  - ARRHYTHMIA [None]
  - CARDIAC FAILURE CONGESTIVE [None]
  - CARDIO-RESPIRATORY ARREST [None]
  - CHRONIC OBSTRUCTIVE AIRWAYS DISEASE [None]
  - CIRCULATORY COLLAPSE [None]
  - CONGESTIVE CARDIOMYOPATHY [None]
  - DIABETES MELLITUS [None]
  - FATIGUE [None]
  - INTERMITTENT CLAUDICATION [None]
  - TRACHEOBRONCHITIS MYCOPLASMAL [None]
